FAERS Safety Report 16566706 (Version 1)
Quarter: 2019Q3

REPORT INFORMATION
  Report Type: Spontaneous
  Country: DE (occurrence: DE)
  Receive Date: 20190712
  Receipt Date: 20190712
  Transmission Date: 20191004
  Serious: Yes (Hospitalization, Other)
  Sender: FDA-Public Use
  Company Number: DE-BAYER-2019-131260

PATIENT
  Age: 83 Year
  Sex: Female

DRUGS (4)
  1. ASPIRIN. [Suspect]
     Active Substance: ASPIRIN
     Dosage: 100 MG, 0-1-1-0
  2. VIGANTOLETTEN [Concomitant]
     Active Substance: CHOLECALCIFEROL
     Dosage: 1000 IU
  3. CIPROFLOXACIN. [Suspect]
     Active Substance: CIPROFLOXACIN
     Dosage: DRUG WITHDRAWN,DATE UNKNOWN
  4. METOPROLOL. [Concomitant]
     Active Substance: METOPROLOL
     Dosage: 47.5 MG 0.5-0-0-0

REACTIONS (2)
  - Abdominal pain lower [Unknown]
  - Haematochezia [Unknown]
